FAERS Safety Report 9571175 (Version 1)
Quarter: 2013Q4

REPORT INFORMATION
  Report Type: Spontaneous
  Country: FR (occurrence: FR)
  Receive Date: 20131001
  Receipt Date: 20131001
  Transmission Date: 20140711
  Serious: Yes (Death, Other)
  Sender: FDA-Public Use
  Company Number: PHHY2013FR108204

PATIENT
  Age: 65 Year
  Sex: Male

DRUGS (6)
  1. GLIVEC [Suspect]
     Indication: HYPEREOSINOPHILIC SYNDROME
     Dosage: 400 MG, DAILY
     Route: 048
  2. DOXORUBICIN [Suspect]
     Dosage: UNK UKN, UNK
  3. PREDNISONE [Suspect]
     Dosage: UNK UKN, UNK
  4. CYCLOPHOSPHAMIDE [Suspect]
  5. ONCOVIN [Suspect]
     Dosage: UNK UKN, UNK
  6. CORTICOSTEROIDS [Suspect]

REACTIONS (6)
  - Acute respiratory failure [Fatal]
  - Sepsis [Fatal]
  - Glossodynia [Unknown]
  - Stomatitis necrotising [Unknown]
  - Osteomyelitis [Unknown]
  - Swollen tongue [Not Recovered/Not Resolved]
